FAERS Safety Report 4824951-9 (Version None)
Quarter: 2005Q4

REPORT INFORMATION
  Report Type: 
  Country: None (occurrence: None)
  Receive Date: 20051110
  Receipt Date: 20050715
  Transmission Date: 20060501
  Serious: Yes (Hospitalization, Disabling)
  Sender: FDA-Public Use
  Company Number: US-MERCK-0507USA02101

PATIENT
  Age: 54 Year
  Sex: Male
  Weight: 100 kg

DRUGS (9)
  1. VIOXX [Suspect]
     Indication: MONARTHRITIS
     Route: 048
     Dates: start: 20000327, end: 20000811
  2. CALAN [Concomitant]
     Indication: HYPERTENSION
     Route: 048
     Dates: start: 19950101
  3. HYDROCHLOROTHIAZIDE [Concomitant]
     Indication: HYPERTENSION
     Route: 048
     Dates: start: 19980101, end: 20050101
  4. ZOLOFT [Concomitant]
     Indication: DEPRESSION
     Route: 048
  5. UNIVASC [Concomitant]
     Indication: HYPERTENSION
     Route: 048
     Dates: start: 20000327
  6. LIPITOR [Concomitant]
     Indication: HYPERCHOLESTEROLAEMIA
     Route: 048
     Dates: start: 20000101, end: 20030101
  7. CEFADROXIL [Concomitant]
     Route: 048
  8. VITAMIN E [Concomitant]
     Route: 048
  9. ASCORBIC ACID [Concomitant]
     Route: 048

REACTIONS (9)
  - ANGINA UNSTABLE [None]
  - ARTHROPATHY [None]
  - CHEST INJURY [None]
  - CONTUSION [None]
  - CORONARY ARTERY DISEASE [None]
  - CORONARY ARTERY OCCLUSION [None]
  - CORONARY ARTERY STENOSIS [None]
  - MYOCARDIAL INFARCTION [None]
  - PALPITATIONS [None]
